FAERS Safety Report 9719717 (Version 3)
Quarter: 2014Q1

REPORT INFORMATION
  Report Type: Spontaneous
  Country: US (occurrence: US)
  Receive Date: 20131128
  Receipt Date: 20140205
  Transmission Date: 20141002
  Serious: Yes (Other)
  Sender: FDA-Public Use
  Company Number: US-009507513-1311USA008959

PATIENT
  Age: 29 Year
  Sex: Female
  Weight: 67.94 kg

DRUGS (2)
  1. IMPLANON [Suspect]
     Dosage: UNK
     Route: 059
     Dates: start: 20110329
  2. NEXPLANON [Suspect]
     Dosage: UNK
     Route: 059
     Dates: start: 20131030, end: 20131119

REACTIONS (5)
  - Ectopic pregnancy [Recovered/Resolved]
  - Unintended pregnancy [Recovered/Resolved]
  - Salpingectomy [Unknown]
  - Device expulsion [Recovered/Resolved]
  - Overdose [Unknown]
